FAERS Safety Report 23800503 (Version 2)
Quarter: 2025Q3

REPORT INFORMATION
  Report Type: Spontaneous
  Country: EU (occurrence: EU)
  Receive Date: 20240430
  Receipt Date: 20250926
  Transmission Date: 20251021
  Serious: Yes (Hospitalization)
  Sender: SUNOVION
  Company Number: EU-AEMPS-1471860

PATIENT
  Age: 88 Year
  Sex: Female

DRUGS (1)
  1. ESLICARBAZEPINE ACETATE [Suspect]
     Active Substance: ESLICARBAZEPINE ACETATE
     Indication: Seizure
     Dosage: 30 MILLIGRAM, QD
     Route: 048
     Dates: start: 20221207, end: 20230223

REACTIONS (3)
  - Rash macular [Recovered/Resolved]
  - Underdose [Recovered/Resolved]
  - Drug dose titration not performed [Recovered/Resolved]

NARRATIVE: CASE EVENT DATE: 20221207
